FAERS Safety Report 12318627 (Version 1)
Quarter: 2016Q2

REPORT INFORMATION
  Report Type: Spontaneous
  Country: IE (occurrence: IE)
  Receive Date: 20160429
  Receipt Date: 20160429
  Transmission Date: 20160815
  Serious: Yes (Other)
  Sender: FDA-Public Use
  Company Number: IE-DEPOMED, INC.-IE-2016DEP009450

PATIENT
  Age: 38 Year
  Sex: Female

DRUGS (1)
  1. TAPENTADOL HYDROCHLORIDE [Suspect]
     Active Substance: TAPENTADOL HYDROCHLORIDE
     Indication: BACK PAIN
     Dosage: 150 MG, BID
     Route: 048

REACTIONS (2)
  - Generalised tonic-clonic seizure [Unknown]
  - Toxicity to various agents [Unknown]
